FAERS Safety Report 16851231 (Version 2)
Quarter: 2019Q4

REPORT INFORMATION
  Report Type: Spontaneous
  Country: US (occurrence: US)
  Receive Date: 20190925
  Receipt Date: 20191023
  Transmission Date: 20200122
  Serious: No
  Sender: FDA-Public Use
  Company Number: US-PFIZER INC-2019409608

PATIENT
  Age: 52 Year
  Sex: Female

DRUGS (1)
  1. XELJANZ [Suspect]
     Active Substance: TOFACITINIB CITRATE
     Dosage: 5 MG, UNK
     Route: 048
     Dates: start: 20190801, end: 20191016

REACTIONS (6)
  - Dyspepsia [Unknown]
  - Nausea [Unknown]
  - Muscle spasms [Unknown]
  - Chromaturia [Unknown]
  - Drug ineffective [Unknown]
  - Fatigue [Unknown]
